FAERS Safety Report 9406425 (Version 3)
Quarter: 2014Q1

REPORT INFORMATION
  Report Type: Report from Study
  Country: IT (occurrence: IT)
  Receive Date: 20130718
  Receipt Date: 20140331
  Transmission Date: 20141002
  Serious: Yes (Other)
  Sender: FDA-Public Use
  Company Number: IT-AMGEN-ITACT2013049110

PATIENT
  Age: 79 Year
  Sex: Female

DRUGS (7)
  1. DENOSUMAB [Suspect]
     Indication: OSTEOPOROSIS POSTMENOPAUSAL
     Dosage: 60 MG, Q6MO
     Route: 058
     Dates: start: 20080312, end: 20130223
  2. CALCIUM W/VITAMIN D                /00944201/ [Concomitant]
     Dosage: 1000MG + 880 IU
  3. NORVASC [Concomitant]
     Dosage: 10 MG, QD
     Route: 048
  4. LOSAPREX [Concomitant]
     Dosage: 50 MG, QD
     Route: 048
  5. SOTALEX [Concomitant]
     Dosage: 80 MG, 2 TABLETS QD
     Route: 048
  6. LUCEN                              /01479302/ [Concomitant]
     Dosage: 40 MG, QD
     Route: 048
  7. RIOPAN                             /00141701/ [Concomitant]
     Dosage: 80 MG, 3 TABLETS, QD
     Route: 048

REACTIONS (2)
  - Vasculitis [Not Recovered/Not Resolved]
  - Wrist fracture [Recovering/Resolving]
